FAERS Safety Report 17279531 (Version 2)
Quarter: 2020Q3

REPORT INFORMATION
  Report Type: Spontaneous
  Country: US (occurrence: US)
  Receive Date: 20200116
  Receipt Date: 20200909
  Transmission Date: 20201102
  Serious: No
  Sender: FDA-Public Use
  Company Number: US-SA-2020SA009937

PATIENT

DRUGS (2)
  1. AUBAGIO [Suspect]
     Active Substance: TERIFLUNOMIDE
     Indication: MULTIPLE SCLEROSIS
  2. AUBAGIO [Suspect]
     Active Substance: TERIFLUNOMIDE
     Indication: PAIN
     Dosage: 14 MG, QD
     Route: 048
     Dates: start: 20190418

REACTIONS (18)
  - Visual impairment [Unknown]
  - Cognitive disorder [Unknown]
  - Muscle spasticity [Unknown]
  - Bladder disorder [Unknown]
  - Fall [Unknown]
  - Fatigue [Unknown]
  - Sensory disturbance [Unknown]
  - Weight increased [Unknown]
  - Sexual dysfunction [Unknown]
  - Condition aggravated [Unknown]
  - Musculoskeletal stiffness [Unknown]
  - Pain [Unknown]
  - Feeling cold [Unknown]
  - Abdominal discomfort [Unknown]
  - Hot flush [Unknown]
  - Product use in unapproved indication [Unknown]
  - Depression [Unknown]
  - Mobility decreased [Unknown]

NARRATIVE: CASE EVENT DATE: 20190419
